FAERS Safety Report 9142580 (Version 3)
Quarter: 2013Q1

REPORT INFORMATION
  Report Type: Spontaneous
  Country: CN (occurrence: CN)
  Receive Date: 20130306
  Receipt Date: 20130327
  Transmission Date: 20140127
  Serious: Yes (Hospitalization, Disabling)
  Sender: FDA-Public Use
  Company Number: CN-JNJFOC-20130214647

PATIENT
  Age: 9 None
  Sex: Male

DRUGS (6)
  1. MOTRIN [Suspect]
     Route: 048
  2. MOTRIN [Suspect]
     Indication: PYREXIA
     Route: 048
     Dates: start: 20020117
  3. CEFAZOLIN [Suspect]
     Indication: PYREXIA
     Route: 042
     Dates: start: 20020117
  4. TRADITIONAL CHINESE MEDICATION [Suspect]
     Indication: PYREXIA
     Route: 042
     Dates: start: 20020117
  5. AN UNKNOWN MEDICATION [Suspect]
     Indication: PYREXIA
     Route: 042
     Dates: start: 20020117
  6. ANALGIN [Suspect]
     Indication: PYREXIA
     Route: 030
     Dates: start: 20020117

REACTIONS (10)
  - Pneumonia [Recovered/Resolved]
  - Dermatitis exfoliative [Recovering/Resolving]
  - Internal injury [Unknown]
  - Erythema multiforme [Recovering/Resolving]
  - Blindness [Not Recovered/Not Resolved]
  - Emphysema [Unknown]
  - Bronchiectasis [Unknown]
  - Scoliosis [Unknown]
  - Weight decreased [Unknown]
  - Xerophthalmia [Unknown]
